FAERS Safety Report 23148386 (Version 1)
Quarter: 2023Q4

REPORT INFORMATION
  Report Type: Spontaneous
  Country: US (occurrence: US)
  Receive Date: 20231106
  Receipt Date: 20231106
  Transmission Date: 20240110
  Serious: Yes (Other)
  Sender: FDA-Public Use
  Company Number: US-002147023-NVSC2023US233804

PATIENT
  Sex: Male

DRUGS (2)
  1. LUTETIUM OXODOTREOTIDE LU-177 [Suspect]
     Active Substance: LUTETIUM OXODOTREOTIDE LU-177
     Indication: Prostate cancer
     Dosage: UNK
     Route: 065
  2. LUTETIUM OXODOTREOTIDE LU-177 [Suspect]
     Active Substance: LUTETIUM OXODOTREOTIDE LU-177
     Indication: Hormone-refractory prostate cancer

REACTIONS (3)
  - Prostate cancer recurrent [Unknown]
  - Metastases to lymph nodes [Unknown]
  - Product use in unapproved indication [Unknown]
